FAERS Safety Report 17591354 (Version 2)
Quarter: 2020Q1

REPORT INFORMATION
  Report Type: Spontaneous
  Country: US (occurrence: US)
  Receive Date: 20200327
  Receipt Date: 20200331
  Transmission Date: 20200409
  Serious: Yes (Hospitalization)
  Sender: FDA-Public Use
  Company Number: US-009507513-2003USA009352

PATIENT
  Age: 32 Year
  Sex: Female
  Weight: 81.63 kg

DRUGS (1)
  1. NUVARING [Suspect]
     Active Substance: ETHINYL ESTRADIOL\ETONOGESTREL
     Indication: CONTRACEPTION
     Dosage: ONE RING EVERY MONTH
     Route: 067
     Dates: start: 201909, end: 20191223

REACTIONS (6)
  - Infertility [Not Recovered/Not Resolved]
  - Postpartum disorder [Not Recovered/Not Resolved]
  - Incorrect product administration duration [Unknown]
  - Abnormal withdrawal bleeding [Not Recovered/Not Resolved]
  - Inappropriate schedule of product administration [Unknown]
  - Metrorrhagia [Not Recovered/Not Resolved]

NARRATIVE: CASE EVENT DATE: 2019
